FAERS Safety Report 4989281-3 (Version None)
Quarter: 2006Q1

REPORT INFORMATION
  Report Type: 
  Country: None (occurrence: None)
  Receive Date: 20060309
  Receipt Date: 20050531
  Transmission Date: 20060701
  Serious: Yes (Other)
  Sender: FDA-Public Use
  Company Number: 406359

PATIENT

DRUGS (3)
  1. ACCUTANE [Suspect]
     Indication: ACNE
     Dates: start: 20040429, end: 20040515
  2. ISOTRETINOIN [Suspect]
     Indication: ACNE
  3. ORAL CONTRACEPTIVE (ORAL CONTRACEPTIVE NOS) [Concomitant]

REACTIONS (1)
  - ABORTION SPONTANEOUS [None]
